FAERS Safety Report 10580369 (Version 1)
Quarter: 2014Q4

REPORT INFORMATION
  Report Type: Spontaneous
  Country: GB (occurrence: GB)
  Receive Date: 20141112
  Receipt Date: 20141112
  Transmission Date: 20150529
  Serious: Yes (Disabling)
  Sender: FDA-Public Use
  Company Number: GB-009507513-1411GBR004954

PATIENT
  Age: 50 Year
  Sex: Male

DRUGS (2)
  1. EZETROL [Suspect]
     Active Substance: EZETIMIBE
     Indication: BLOOD CHOLESTEROL INCREASED
     Dosage: 10 MG
     Route: 048
  2. CRESTOR [Concomitant]
     Active Substance: ROSUVASTATIN CALCIUM
     Dosage: 20 MG

REACTIONS (18)
  - Myalgia [Unknown]
  - Nausea [Unknown]
  - Decreased appetite [Unknown]
  - Balance disorder [Unknown]
  - Quality of life decreased [Unknown]
  - Adverse event [Unknown]
  - Self esteem decreased [Unknown]
  - Social problem [Unknown]
  - Oropharyngeal pain [Unknown]
  - Muscular weakness [Unknown]
  - Flatulence [Unknown]
  - Rash [Unknown]
  - Vomiting [Unknown]
  - Insomnia [Unknown]
  - Dizziness [Unknown]
  - Fatigue [Unknown]
  - Psychiatric symptom [Unknown]
  - Abdominal distension [Unknown]
